FAERS Safety Report 9502975 (Version 1)
Quarter: 2013Q3

REPORT INFORMATION
  Report Type: Report from Study
  Country: MX (occurrence: MX)
  Receive Date: 20130906
  Receipt Date: 20130906
  Transmission Date: 20140515
  Serious: Yes (Death)
  Sender: FDA-Public Use
  Company Number: PHHY2013MX097759

PATIENT
  Age: 80 Year
  Sex: Male

DRUGS (3)
  1. CO-DIOVAN [Suspect]
     Indication: BLOOD PRESSURE ABNORMAL
     Dosage: 1 DF (160MG VALS/ 25MG HYDR), DAILY
     Route: 048
  2. ASPIRIN [Concomitant]
     Indication: BLOOD CHOLESTEROL INCREASED
     Dosage: 1 DF, DAILY
     Dates: start: 2005
  3. ASPIRIN [Concomitant]
     Indication: COAGULOPATHY

REACTIONS (1)
  - Myocardial infarction [Fatal]
